FAERS Safety Report 18154634 (Version 3)
Quarter: 2020Q3

REPORT INFORMATION
  Report Type: Spontaneous
  Country: US (occurrence: US)
  Receive Date: 20200817
  Receipt Date: 20200915
  Transmission Date: 20201103
  Serious: No
  Sender: FDA-Public Use
  Company Number: US-BEH-2020121005

PATIENT

DRUGS (2)
  1. KCENTRA [Suspect]
     Active Substance: COAGULATION FACTOR IX HUMAN\COAGULATION FACTOR VII HUMAN\COAGULATION FACTOR X HUMAN\PROTEIN C\PROTEIN S HUMAN\PROTHROMBIN
     Dosage: UNK
     Route: 065
     Dates: start: 20200804, end: 20200804
  2. KCENTRA [Suspect]
     Active Substance: COAGULATION FACTOR IX HUMAN\COAGULATION FACTOR VII HUMAN\COAGULATION FACTOR X HUMAN\PROTEIN C\PROTEIN S HUMAN\PROTHROMBIN
     Dosage: UNK
     Route: 065
     Dates: start: 20200804, end: 20200804

REACTIONS (4)
  - Product preparation issue [Unknown]
  - Expired product administered [Unknown]
  - No adverse event [Unknown]
  - Device issue [Unknown]
